FAERS Safety Report 23442113 (Version 8)
Quarter: 2024Q3

REPORT INFORMATION
  Report Type: Other
  Country: US (occurrence: US)
  Receive Date: 20240125
  Receipt Date: 20240930
  Transmission Date: 20241017
  Serious: No
  Sender: TRAVERE THERAPEUTICS
  Company Number: US-TRAVERE-2023TVT00885

PATIENT
  Age: 58 Year
  Sex: Male

DRUGS (6)
  1. FILSPARI [Suspect]
     Active Substance: SPARSENTAN
     Indication: IgA nephropathy
     Dosage: 400 MG?EXPIRY DATE: 31-AUG-2025
     Route: 048
     Dates: start: 20231115
  2. TAMSULOSIN HYDROCHLORIDE [Concomitant]
     Active Substance: TAMSULOSIN HYDROCHLORIDE
  3. SODIUM BICARBONATE [Concomitant]
     Active Substance: SODIUM BICARBONATE
  4. SILDENAFIL CITRATE [Concomitant]
     Active Substance: SILDENAFIL CITRATE
  5. TARPEYO [Concomitant]
     Active Substance: BUDESONIDE
  6. BUMETANIDE [Concomitant]
     Active Substance: BUMETANIDE

REACTIONS (5)
  - Urine output increased [Recovering/Resolving]
  - Peripheral swelling [Recovering/Resolving]
  - Pain in extremity [Unknown]
  - Fatigue [None]
  - Pruritus [Unknown]

NARRATIVE: CASE EVENT DATE: 20231215
